FAERS Safety Report 12542753 (Version 4)
Quarter: 2016Q3

REPORT INFORMATION
  Report Type: Spontaneous
  Country: GB (occurrence: GB)
  Receive Date: 20160709
  Receipt Date: 20160818
  Transmission Date: 20161109
  Serious: Yes (Hospitalization, Other)
  Sender: FDA-Public Use
  Company Number: GB-AMGEN-GBRSP2016087653

PATIENT
  Age: 62 Year
  Sex: Female
  Weight: 49 kg

DRUGS (1)
  1. ARANESP [Suspect]
     Active Substance: DARBEPOETIN ALFA
     Indication: NEPHROGENIC ANAEMIA
     Dosage: 150 MCG, QWK
     Route: 042
     Dates: start: 201005

REACTIONS (6)
  - Drug ineffective [Unknown]
  - Haemodialysis [Unknown]
  - Haemoglobin decreased [Not Recovered/Not Resolved]
  - Anaemia [Unknown]
  - Reticulocyte count decreased [Not Recovered/Not Resolved]
  - Kidney transplant rejection [Unknown]

NARRATIVE: CASE EVENT DATE: 2014
